FAERS Safety Report 25835340 (Version 2)
Quarter: 2025Q4

REPORT INFORMATION
  Report Type: Spontaneous
  Country: EU (occurrence: EU)
  Receive Date: 20250923
  Receipt Date: 20251014
  Transmission Date: 20260118
  Serious: Yes (Other)
  Sender: TEVA
  Company Number: EU-TEVA-VS-3374364

PATIENT
  Age: 32 Year
  Sex: Female

DRUGS (8)
  1. CETIRIZINE [Suspect]
     Active Substance: CETIRIZINE HYDROCHLORIDE
     Indication: Allergy prophylaxis
     Route: 065
  2. MONTELUKAST [Suspect]
     Active Substance: MONTELUKAST
     Indication: Allergy prophylaxis
     Route: 065
  3. BUDESONIDE [Suspect]
     Active Substance: BUDESONIDE
     Indication: Spondylitis
     Route: 065
  4. ADALIMUMAB [Suspect]
     Active Substance: ADALIMUMAB
     Indication: Spondylitis
     Route: 058
     Dates: start: 2020
  5. METHYLPREDNISOLONE [Suspect]
     Active Substance: METHYLPREDNISOLONE
     Indication: Allergy prophylaxis
     Route: 065
  6. USTEKINUMAB [Suspect]
     Active Substance: USTEKINUMAB
     Indication: Spondylitis
     Dosage: 90MG/ML CONCENTRATION
     Route: 058
     Dates: start: 2021
  7. USTEKINUMAB [Suspect]
     Active Substance: USTEKINUMAB
     Indication: Spondylitis
     Dosage: 5 MG/ML CONCENTRATION, AT AN INFUSION RATE OF 40 ML/H
     Route: 042
  8. USTEKINUMAB [Suspect]
     Active Substance: USTEKINUMAB
     Indication: Spondylitis
     Dosage: 5 MG/ML CONCENTRATION
     Route: 042
     Dates: start: 2021

REACTIONS (10)
  - Drug ineffective [Unknown]
  - Drug specific antibody present [Unknown]
  - Injection site induration [Unknown]
  - Injection site oedema [Unknown]
  - Type I hypersensitivity [Recovered/Resolved]
  - Drug hypersensitivity [Recovered/Resolved]
  - Pruritus allergic [Recovered/Resolved]
  - Erythema [Recovered/Resolved]
  - Oedema [Recovered/Resolved]
  - Swelling [Recovered/Resolved]

NARRATIVE: CASE EVENT DATE: 20230101
